FAERS Safety Report 21568634 (Version 5)
Quarter: 2022Q4

REPORT INFORMATION
  Report Type: Report from Study
  Country: US (occurrence: US)
  Receive Date: 20221108
  Receipt Date: 20221215
  Transmission Date: 20230113
  Serious: Yes (Other)
  Sender: FDA-Public Use
  Company Number: US-BEH-2022151501

PATIENT
  Age: 50 Year
  Sex: Female

DRUGS (55)
  1. HIZENTRA [Suspect]
     Active Substance: HUMAN IMMUNOGLOBULIN G
     Indication: Primary immunodeficiency syndrome
     Dosage: 14 GRAM, QW (70 ML)
     Route: 058
     Dates: start: 20220927
  2. HIZENTRA [Suspect]
     Active Substance: HUMAN IMMUNOGLOBULIN G
     Indication: Infection
     Dosage: 14 GRAM, QW
     Route: 058
     Dates: start: 20221017
  3. HIZENTRA [Suspect]
     Active Substance: HUMAN IMMUNOGLOBULIN G
     Dosage: UNK
     Route: 065
     Dates: start: 20221025
  4. HIZENTRA [Suspect]
     Active Substance: HUMAN IMMUNOGLOBULIN G
     Dosage: UNK
     Route: 065
     Dates: start: 202210
  5. HIZENTRA [Suspect]
     Active Substance: HUMAN IMMUNOGLOBULIN G
     Dosage: 14 GRAM, QW (70 ML)
     Route: 058
  6. HIZENTRA [Suspect]
     Active Substance: HUMAN IMMUNOGLOBULIN G
     Dosage: UNK
     Route: 065
     Dates: start: 20221121
  7. ACETAMINOPHEN [Concomitant]
     Active Substance: ACETAMINOPHEN
     Dosage: 500 MILLIGRAM
  8. ACETAMINOPHEN [Concomitant]
     Active Substance: ACETAMINOPHEN
     Dosage: 325 MILLIGRAM
  9. ACYCLOVIR [Concomitant]
     Active Substance: ACYCLOVIR
     Dosage: 800 MILLIGRAM
  10. ALBUTEROL SULFATE [Concomitant]
     Active Substance: ALBUTEROL SULFATE
  11. ALPRAZOLAM [Concomitant]
     Active Substance: ALPRAZOLAM
     Dosage: 0.5 MILLIGRAM
  12. AZITHROMYCIN [Concomitant]
     Active Substance: AZITHROMYCIN
     Dosage: 250 MILLIGRAM
  13. BREO ELLIPTA [Concomitant]
     Active Substance: FLUTICASONE FUROATE\VILANTEROL TRIFENATATE
  14. BUDESONIDE [Concomitant]
     Active Substance: BUDESONIDE
  15. BUPROPION [Concomitant]
     Active Substance: BUPROPION
     Dosage: 150 MILLIGRAM
  16. BUSPIRONE [Concomitant]
     Active Substance: BUSPIRONE HYDROCHLORIDE
     Dosage: 10 MILLIGRAM
  17. BUSPIRONE [Concomitant]
     Active Substance: BUSPIRONE HYDROCHLORIDE
     Dosage: 30 MILLIGRAM
  18. CHLORHEX GLUC ALCO [Concomitant]
     Dosage: 0.12 PERCENT
  19. CYCLOBENZAPRINE [Concomitant]
     Active Substance: CYCLOBENZAPRINE
     Dosage: 5 MILLIGRAM
  20. DIAZEPAM [Concomitant]
     Active Substance: DIAZEPAM
     Dosage: 10 MILLIGRAM
  21. DIPHENHYDRAMINE [Concomitant]
     Active Substance: DIPHENHYDRAMINE
     Dosage: 25 MILLIGRAM
  22. EPINEPHRINE [Concomitant]
     Active Substance: EPINEPHRINE
     Dosage: 0.3 MILLIGRAM
  23. EPINEPHRINE [Concomitant]
     Active Substance: EPINEPHRINE
     Dosage: 0.3 MILLIGRAM (2=2)
  24. ESTRADIOL [Concomitant]
     Active Substance: ESTRADIOL
     Dosage: 2 MILLIGRAM
  25. FLUCONAZOLE [Concomitant]
     Active Substance: FLUCONAZOLE
     Dosage: 150 MILLIGRAM
  26. GABAPENTIN [Concomitant]
     Active Substance: GABAPENTIN
     Dosage: 800 MILLIGRAM
  27. HYDROCHLOROTHIAZIDE [Concomitant]
     Active Substance: HYDROCHLOROTHIAZIDE
     Dosage: 12.5 MILLIGRAM
  28. HYDROCODONE BITARTRATE AND ACETAMINOPHEN [Concomitant]
     Active Substance: ACETAMINOPHEN\HYDROCODONE BITARTRATE
     Dosage: 5-325 MG
  29. HOMATROPINE METHYLBROMIDE\HYDROCODONE BITARTRATE [Concomitant]
     Active Substance: HOMATROPINE METHYLBROMIDE\HYDROCODONE BITARTRATE
     Dosage: 5-1.5/5
  30. HYDROMORPHONE [Concomitant]
     Active Substance: HYDROMORPHONE
     Dosage: 2 MILLIGRAM
  31. HYDROXYZINE HYDROCHLORIDE [Concomitant]
     Active Substance: HYDROXYZINE HYDROCHLORIDE
     Dosage: 50 MILLIGRAM
  32. IPRATROPIUM [Concomitant]
     Active Substance: IPRATROPIUM
  33. ALBUTEROL [Concomitant]
     Active Substance: ALBUTEROL
  34. LIDOCAINE [Concomitant]
     Active Substance: LIDOCAINE
     Dosage: 5 PERCENT
  35. LIDOCAINE [Concomitant]
     Active Substance: LIDOCAINE
     Dosage: 2 PERCENT
  36. MONTELUKAST [Concomitant]
     Active Substance: MONTELUKAST SODIUM
     Dosage: 10 MILLIGRAM
  37. ONDANSETRON HYDROCHLORIDE [Concomitant]
     Active Substance: ONDANSETRON HYDROCHLORIDE
     Dosage: 4 MILLIGRAM
  38. PAROXETINE [Concomitant]
     Active Substance: PAROXETINE
     Dosage: 40 MILLIGRAM
  39. PHENTERMINE [Concomitant]
     Active Substance: PHENTERMINE
     Dosage: 37.5 MILLIGRAM
  40. PREDNISONE [Concomitant]
     Active Substance: PREDNISONE
     Dosage: 20 MILLIGRAM
  41. PREDNISONE [Concomitant]
     Active Substance: PREDNISONE
     Dosage: 5 UNK
  42. PREGABALIN [Concomitant]
     Active Substance: PREGABALIN
     Dosage: 150 MILLIGRAM
  43. PREGABALIN [Concomitant]
     Active Substance: PREGABALIN
     Dosage: 75 MILLIGRAM
  44. PRIVIGEN [Concomitant]
     Active Substance: HUMAN IMMUNOGLOBULIN G
     Dosage: 20 GRAM
     Route: 065
  45. PRIVIGEN [Concomitant]
     Active Substance: HUMAN IMMUNOGLOBULIN G
     Dosage: 5 GRAM (50 ML)
     Route: 065
  46. PRIVIGEN [Concomitant]
     Active Substance: HUMAN IMMUNOGLOBULIN G
     Dosage: 10  GRAM (100ML)
     Route: 065
  47. PRIVIGEN [Concomitant]
     Active Substance: HUMAN IMMUNOGLOBULIN G
     Dosage: 20 GRAM (200 ML)
     Route: 065
  48. PROMETHAZINE [Concomitant]
     Active Substance: PROMETHAZINE HYDROCHLORIDE
  49. SODIUM CHLORIDE [Concomitant]
     Active Substance: SODIUM CHLORIDE
     Dosage: 500 MILLILITER (0.9 PERCENT)
  50. SODIUM CHLORIDE [Concomitant]
     Active Substance: SODIUM CHLORIDE
     Dosage: 10 MILLILITER
  51. TRAMADOL HCL [Concomitant]
     Active Substance: TRAMADOL HYDROCHLORIDE
     Dosage: 50 MILLIGRAM
  52. TRIAMCINOLONE [Concomitant]
     Active Substance: TRIAMCINOLONE
     Dosage: 0.1 PERCENT
  53. VALACYCLOVIR [Concomitant]
     Active Substance: VALACYCLOVIR HYDROCHLORIDE
     Dosage: 1 GRAM
  54. VALACYCLOVIR [Concomitant]
     Active Substance: VALACYCLOVIR HYDROCHLORIDE
     Dosage: 500 MILLIGRAM
  55. HYDROCORTISONE ACETATE [Concomitant]
     Active Substance: HYDROCORTISONE ACETATE

REACTIONS (25)
  - Sinusitis [Recovering/Resolving]
  - Abdominal discomfort [Unknown]
  - Abdominal pain upper [Unknown]
  - Fatigue [Unknown]
  - Infusion site pain [Not Recovered/Not Resolved]
  - Infusion site bruising [Not Recovered/Not Resolved]
  - Sensitive skin [Unknown]
  - Nasopharyngitis [Not Recovered/Not Resolved]
  - Fatigue [Not Recovered/Not Resolved]
  - Cough [Not Recovered/Not Resolved]
  - Muscle spasms [Unknown]
  - Gastroenteritis viral [Unknown]
  - Abdominal discomfort [Recovering/Resolving]
  - Muscle spasms [Not Recovered/Not Resolved]
  - Decreased appetite [Not Recovered/Not Resolved]
  - Weight decreased [Not Recovered/Not Resolved]
  - No adverse event [Unknown]
  - Product dose omission issue [Unknown]
  - Nasopharyngitis [Unknown]
  - Fatigue [Not Recovered/Not Resolved]
  - Headache [Not Recovered/Not Resolved]
  - Fatigue [Not Recovered/Not Resolved]
  - Headache [Recovered/Resolved]
  - Bronchitis [Not Recovered/Not Resolved]
  - Anxiety [Not Recovered/Not Resolved]

NARRATIVE: CASE EVENT DATE: 20221001
